FAERS Safety Report 8397123-1 (Version None)
Quarter: 2012Q2

REPORT INFORMATION
  Report Type: 
  Country: None (occurrence: None)
  Receive Date: 20120530
  Receipt Date: 20120518
  Transmission Date: 20120825
  Serious: Yes (Hospitalization)
  Sender: FDA-Public Use
  Company Number: GB-BAXTER-2012BAX006124

PATIENT
  Sex: Male
  Weight: 29.1 kg

DRUGS (13)
  1. DOXORUBICIN HCL [Suspect]
     Indication: SARCOMA
     Route: 042
     Dates: start: 20110628
  2. VINORELBINE [Suspect]
     Indication: SARCOMA
     Route: 042
     Dates: start: 20120420
  3. DACTINOMYCIN [Suspect]
     Indication: SARCOMA
     Route: 042
     Dates: start: 20110628
  4. COTRIM [Concomitant]
     Dates: start: 20110919
  5. COTRIM [Concomitant]
     Dates: start: 20110609
  6. SEPTRA [Concomitant]
     Dates: start: 20110711, end: 20110712
  7. CYCLOPHOSPHAMIDE [Suspect]
     Indication: SARCOMA
     Route: 048
     Dates: start: 20120420
  8. BEVACIZUMAB [Suspect]
     Indication: SARCOMA
     Route: 042
     Dates: start: 20110628, end: 20110719
  9. IFOSFAMIDE [Suspect]
     Indication: SARCOMA
     Route: 042
     Dates: start: 20110628
  10. VINCRISTINE [Suspect]
     Indication: SARCOMA
     Route: 042
     Dates: start: 20110628
  11. BEVACIZUMAB [Suspect]
     Route: 042
     Dates: start: 20120420
  12. ACETAMINOPHEN [Concomitant]
     Dates: start: 20110915, end: 20110917
  13. GABAPENTIN [Concomitant]
     Dates: start: 20111112

REACTIONS (2)
  - HERPES ZOSTER [None]
  - FEBRILE NEUTROPENIA [None]
